FAERS Safety Report 17491893 (Version 1)
Quarter: 2020Q1

REPORT INFORMATION
  Report Type: Report from Study
  Country: FR (occurrence: FR)
  Receive Date: 20200303
  Receipt Date: 20200303
  Transmission Date: 20200409
  Serious: Yes (Hospitalization)
  Sender: FDA-Public Use
  Company Number: FR-MYLANLABS-2020M1022705

PATIENT
  Age: 76 Year
  Sex: Female

DRUGS (12)
  1. CAPECITABINE. [Suspect]
     Active Substance: CAPECITABINE
     Indication: ANAL SQUAMOUS CELL CARCINOMA
     Dosage: UNK
     Route: 065
  2. FLUOROURACIL. [Suspect]
     Active Substance: FLUOROURACIL
     Indication: ANAL SQUAMOUS CELL CARCINOMA
     Dosage: LAST DOSE OF 5-FLU 2970 MG MOST RECENT DOSE OF 4-FU (2898 MG) PRIOR TO SECOND EPISODE: 31/JUL/2019
     Route: 065
     Dates: start: 20190419
  3. SMECTA [Concomitant]
     Active Substance: MONTMORILLONITE
     Dosage: UNK
     Route: 065
     Dates: start: 20190420
  4. PLITICAN [Concomitant]
     Active Substance: ALIZAPRIDE HYDROCHLORIDE
     Dosage: UNK
     Route: 065
     Dates: start: 20190516
  5. XANAX [Concomitant]
     Active Substance: ALPRAZOLAM
     Dosage: UNK
     Route: 065
     Dates: start: 20190619
  6. AMLOR [Concomitant]
     Active Substance: AMLODIPINE BESYLATE
     Dosage: UNK
     Route: 065
     Dates: start: 2017
  7. BICARBONATE [Concomitant]
     Active Substance: SODIUM BICARBONATE
     Dosage: UNK
     Route: 065
     Dates: start: 20190718
  8. DOCETAXEL. [Suspect]
     Active Substance: DOCETAXEL
     Indication: ANAL SQUAMOUS CELL CARCINOMA
     Dosage: LAST DOSE OF DOCETAXEL 66 MG ON 16/MAY/2019 MOST RECENT DOSE OF DOCETAXEL (64 MG) PRIOR TO SECOND EP
     Route: 065
     Dates: start: 20190419
  9. ATEZOLIZUMAB. [Suspect]
     Active Substance: ATEZOLIZUMAB
     Indication: ANAL SQUAMOUS CELL CARCINOMA
     Dosage: LAST DOSE 16/MAY/2019 MOST RECENT DOSE OF ATEZOLIZUMAB (800 MG) PRIOR TO SECOND EPISODE: 31/JUL/2019
     Route: 042
     Dates: start: 20190419
  10. CISPLATIN. [Suspect]
     Active Substance: CISPLATIN
     Indication: ANAL SQUAMOUS CELL CARCINOMA
     Dosage: LAST DOSE OF CISPLATIN 66 MG ON 16/MAY/2019. MOST RECENT DOSE OF CISPLATIN (42 MG/M2) PIOR TO SECOND
     Route: 065
     Dates: start: 20190419
  11. MELAXOSE [Concomitant]
     Active Substance: LACTULOSE\PARAFFIN
     Dosage: UNK
     Route: 065
     Dates: start: 201904
  12. MOVICOL [Concomitant]
     Active Substance: POLYETHYLENE GLYCOL 3350\POTASSIUM CHLORIDE\SODIUM BICARBONATE\SODIUM CHLORIDE
     Dosage: UNK
     Route: 065
     Dates: start: 201904

REACTIONS (3)
  - Dehydration [Recovered/Resolved]
  - Loss of consciousness [Recovered/Resolved]
  - Hypokalaemia [Recovered/Resolved]

NARRATIVE: CASE EVENT DATE: 20190523
